FAERS Safety Report 16170883 (Version 1)
Quarter: 2019Q2

REPORT INFORMATION
  Report Type: Report from Study
  Country: IT (occurrence: IT)
  Receive Date: 20190408
  Receipt Date: 20190408
  Transmission Date: 20190711
  Serious: Yes (Other)
  Sender: FDA-Public Use
  Company Number: IT-MYLANLABS-2019M1031701

PATIENT
  Age: 46 Year
  Sex: Female

DRUGS (1)
  1. FUROSEMIDE. [Suspect]
     Active Substance: FUROSEMIDE
     Indication: PRODUCT USED FOR UNKNOWN INDICATION
     Dosage: 4 DOSAGE FORM, QD
     Route: 048

REACTIONS (3)
  - Fall [Unknown]
  - Head injury [Unknown]
  - Syncope [Unknown]

NARRATIVE: CASE EVENT DATE: 20180622
